FAERS Safety Report 8490383-8 (Version None)
Quarter: 2012Q3

REPORT INFORMATION
  Report Type: 
  Country: None (occurrence: None)
  Receive Date: 20120705
  Receipt Date: 20120628
  Transmission Date: 20120928
  Serious: Yes (Other)
  Sender: FDA-Public Use
  Company Number: BR-PFIZER INC-2012091545

PATIENT
  Age: 65 Year
  Sex: Female
  Weight: 46.5 kg

DRUGS (8)
  1. ALENIA [Concomitant]
     Dosage: 2 DF, 2X/DAY
     Dates: start: 20080101
  2. OMEPRAZOLE [Concomitant]
     Dosage: 2 DF, UNK WHILE FASTING
  3. PERIDONA [Concomitant]
     Dosage: UNK, 3X/DAY BEFORE MEALS
  4. ALENDRONATE SODIUM [Concomitant]
     Dosage: 70 MG, WEEKLY
  5. CALCIUM [Concomitant]
     Dosage: 500 MG, 1X/DAY
  6. XALATAN [Suspect]
     Indication: GLAUCOMA
     Dosage: 3 UG (1 DROP EACH EYE), 1X/DAY
     Route: 047
     Dates: start: 20120407
  7. LOSARTAN POTASSIUM [Concomitant]
     Dosage: UNK, 2X/DAY
  8. SIMVASTATIN [Concomitant]
     Dosage: 20 MG, 1X/DAY AT NIGHT

REACTIONS (8)
  - VISUAL ACUITY REDUCED [None]
  - EYE PAIN [None]
  - CHEST PAIN [None]
  - MYALGIA [None]
  - PAIN IN EXTREMITY [None]
  - ALLERGIC COUGH [None]
  - HEADACHE [None]
  - VISION BLURRED [None]
